FAERS Safety Report 24680315 (Version 1)
Quarter: 2024Q4

REPORT INFORMATION
  Report Type: Other
  Country: US (occurrence: US)
  Receive Date: 20241129
  Receipt Date: 20241129
  Transmission Date: 20250115
  Serious: Yes (Other)
  Sender: DECIPHERA PHARMACEUTICALS
  Company Number: US-DECIPHERA PHARMACEUTICALS LLC-2023US000918

PATIENT
  Sex: Female
  Weight: 56.43 kg

DRUGS (2)
  1. QINLOCK [Suspect]
     Active Substance: RIPRETINIB
     Indication: Gastrointestinal stromal tumour
     Dosage: UNK
  2. SUTENT [Suspect]
     Active Substance: SUNITINIB MALATE
     Indication: Product used for unknown indication
     Dosage: UNK

REACTIONS (14)
  - Gastrointestinal stromal tumour [Unknown]
  - Ascites [Unknown]
  - Supraventricular extrasystoles [Unknown]
  - Condition aggravated [Unknown]
  - Frequent bowel movements [Unknown]
  - Bone pain [Unknown]
  - Peripheral swelling [Unknown]
  - Abdominal distension [Unknown]
  - Pain in extremity [Unknown]
  - Stomatitis [Unknown]
  - Arthralgia [Unknown]
  - Fatigue [Unknown]
  - Muscle spasms [Unknown]
  - Constipation [Unknown]
